FAERS Safety Report 17968013 (Version 1)
Quarter: 2020Q3

REPORT INFORMATION
  Report Type: Spontaneous
  Country: SE (occurrence: SE)
  Receive Date: 20200701
  Receipt Date: 20200701
  Transmission Date: 20201103
  Serious: Yes (Disabling)
  Sender: FDA-Public Use
  Company Number: SE-TEVA-2020-SE-1792984

PATIENT
  Age: 52 Year
  Sex: Female
  Weight: 74 kg

DRUGS (2)
  1. DOCETAXEL (ANHYDROUS) [Suspect]
     Active Substance: DOCETAXEL
     Indication: BREAST CANCER
     Dosage: GOT 3 TREATMENTS AT ABOUT 3 INTERVALS. DON^T KNOW BATCH NO.
     Dates: start: 20160420, end: 20160602
  2. HERCEPTIN [Concomitant]
     Active Substance: TRASTUZUMAB
     Dates: start: 20160420, end: 20170327

REACTIONS (7)
  - Joint stiffness [Not Recovered/Not Resolved]
  - Neuropathy peripheral [Not Recovered/Not Resolved]
  - Arthralgia [Not Recovered/Not Resolved]
  - Mental fatigue [Not Recovered/Not Resolved]
  - Libido decreased [Not Recovered/Not Resolved]
  - Eye irritation [Not Recovered/Not Resolved]
  - Dry eye [Not Recovered/Not Resolved]

NARRATIVE: CASE EVENT DATE: 2016
